FAERS Safety Report 20819114 (Version 1)
Quarter: 2022Q2

REPORT INFORMATION
  Report Type: Spontaneous
  Country: US (occurrence: None)
  Receive Date: 20220511
  Receipt Date: 20220511
  Transmission Date: 20220721
  Serious: No
  Sender: FDA-Public Use
  Company Number: None

PATIENT
  Age: 9 Year
  Sex: Male

DRUGS (1)
  1. OSELTAMIVIR PHOSPHATE [Suspect]
     Active Substance: OSELTAMIVIR PHOSPHATE
     Indication: Influenza
     Dosage: FREQUENCY : TWICE A DAY;?
     Route: 048
     Dates: start: 20220510, end: 20220511

REACTIONS (4)
  - Middle insomnia [None]
  - Hallucination, visual [None]
  - Feeling abnormal [None]
  - Abnormal behaviour [None]

NARRATIVE: CASE EVENT DATE: 20220511
